FAERS Safety Report 10221357 (Version 1)
Quarter: 2014Q2

REPORT INFORMATION
  Report Type: Spontaneous
  Country: US (occurrence: None)
  Receive Date: 20140604
  Receipt Date: 20140604
  Transmission Date: 20141212
  Serious: Yes (Death)
  Sender: FDA-Public Use
  Company Number: ADR-2014-00929

PATIENT
  Age: 55 Year
  Sex: Female

DRUGS (5)
  1. BACLOFEN [Suspect]
     Indication: CANCER PAIN
  2. BACLOFEN [Suspect]
     Indication: OVARIAN CANCER
  3. DILAUDID [Suspect]
     Indication: CANCER PAIN
  4. DILAUDID [Suspect]
     Indication: OVARIAN CANCER
  5. BUPIVACINE [Suspect]

REACTIONS (1)
  - Ovarian cancer [None]
